FAERS Safety Report 7800495-7 (Version None)
Quarter: 2011Q4

REPORT INFORMATION
  Report Type: 
  Country: None (occurrence: None)
  Receive Date: 20111006
  Receipt Date: 20110926
  Transmission Date: 20120403
  Serious: Yes (Death, Other)
  Sender: FDA-Public Use
  Company Number: US-BAYER-201011969NA

PATIENT
  Age: 85 Year
  Sex: Male
  Weight: 73 kg

DRUGS (26)
  1. ALTACE [Concomitant]
     Dosage: UNK
     Route: 048
     Dates: end: 20040317
  2. PLAVIX [Concomitant]
     Dosage: UNK
  3. FENTANYL [Concomitant]
     Dosage: 500 MG, UNK
     Route: 042
     Dates: start: 20040318, end: 20040318
  4. HEPARIN [Concomitant]
     Dosage: 10000 U CARDIOPULMONARY BYPASS
     Dates: start: 20040318, end: 20040318
  5. MILRINONE [Concomitant]
     Dosage: 0.75 MCG/KG/MIN - 3650MCG
     Route: 042
     Dates: start: 20040318, end: 20040318
  6. VANCOMYCIN [Concomitant]
     Dosage: 1 G, UNK
     Route: 042
     Dates: start: 20040318, end: 20040318
  7. FRESH FROZEN PLASMA [Concomitant]
     Dosage: 2 U, UNK
     Route: 042
     Dates: start: 20040318, end: 20040318
  8. RED BLOOD CELLS [Concomitant]
     Dosage: 4 U, UNK
     Route: 042
     Dates: start: 20040318, end: 20040318
  9. RED BLOOD CELLS [Concomitant]
     Dosage: 3 UNITS CARDIOPULMONARY BYPASS
     Dates: start: 20040318, end: 20040318
  10. LEVOPHED [Concomitant]
     Dosage: 0.05MCG/KG/MIN
     Route: 042
     Dates: start: 20040318, end: 20040318
  11. TRASYLOL [Suspect]
     Indication: CORONARY ARTERY BYPASS
     Dosage: INITAL TEST DOSE 1ML, LOADING DOSE 100ML
     Dates: start: 20040318, end: 20040318
  12. SOLU-CORTEF [Concomitant]
     Dosage: 100 MG, UNK
     Route: 042
     Dates: start: 20040318, end: 20040318
  13. NOVOLIN R [Concomitant]
     Dosage: 10 U, UNK
     Route: 042
     Dates: start: 20040318, end: 20040318
  14. VASOPRESSIN [Concomitant]
     Dosage: 5U/HR
     Route: 042
     Dates: start: 20040318, end: 20040318
  15. SIMVASTATIN [Concomitant]
     Dosage: 20MG/ 1/2 TAB AT BEDTIME
     Route: 048
     Dates: start: 20030519, end: 20040314
  16. ISOSORBIDE DINITRATE [Concomitant]
  17. INSULIN [Concomitant]
     Dosage: 10 U, CARDIOPULMONARY BYPASS
  18. ACETYLSALICYLIC ACID SRT [Concomitant]
     Dosage: UNK
     Route: 048
     Dates: start: 20040311
  19. NIMBEX [Concomitant]
     Dosage: 14 MG, UNK
     Route: 042
     Dates: start: 20040318, end: 20040318
  20. ISOFLURANE [Concomitant]
     Dosage: UNK
     Dates: start: 20040318, end: 20040318
  21. DOBUTAMINE HCL [Concomitant]
     Dosage: 5MCG/KG/MIN
     Route: 042
     Dates: start: 20040318, end: 20040318
  22. PROTAMINE [Concomitant]
     Dosage: 300 MG, UNK
     Route: 042
     Dates: start: 20040318, end: 20040318
  23. PROPOFOL [Concomitant]
     Dosage: 60 MG, UNK
     Route: 042
     Dates: start: 20040318, end: 20040318
  24. HEPARIN [Concomitant]
     Dosage: 22000 U, UNK
     Route: 042
     Dates: start: 20040318, end: 20040318
  25. PREDNISONE [Concomitant]
     Dosage: 10 MG, UNK
     Dates: start: 20031128
  26. METOPROLOL TARTRATE [Concomitant]

REACTIONS (12)
  - EMOTIONAL DISTRESS [None]
  - ANXIETY [None]
  - DEATH [None]
  - RENAL FAILURE [None]
  - RENAL INJURY [None]
  - UNEVALUABLE EVENT [None]
  - FEAR [None]
  - STRESS [None]
  - PAIN [None]
  - RENAL IMPAIRMENT [None]
  - MULTI-ORGAN FAILURE [None]
  - INJURY [None]
